FAERS Safety Report 7123884-5 (Version None)
Quarter: 2010Q4

REPORT INFORMATION
  Report Type: 
  Country: None (occurrence: None)
  Receive Date: 20101125
  Receipt Date: 20101114
  Transmission Date: 20110411
  Serious: Yes (Hospitalization)
  Sender: FDA-Public Use
  Company Number: IL-ELI_LILLY_AND_COMPANY-IL201010003014

PATIENT
  Age: 71 Year
  Sex: Female
  Weight: 80 kg

DRUGS (5)
  1. FORTEO [Suspect]
     Indication: OSTEOPOROSIS
     Dosage: 20 UG, DAILY (1/D)
     Route: 058
     Dates: start: 20101001
  2. COUMADIN [Concomitant]
     Indication: MUSCLE SPASMS
     Dosage: 1 D/F, DAILY (1/D)
     Route: 048
     Dates: start: 20000101
  3. OPTALGIN [Concomitant]
     Indication: PAIN IN EXTREMITY
     Dosage: 30 D/F, 2/D
     Route: 048
  4. VITAMIN D [Concomitant]
     Indication: OSTEOPOROSIS
     Dosage: 1 D/F, DAILY (1/D)
     Route: 048
  5. ARCOXIA [Concomitant]
     Indication: PAIN IN EXTREMITY
     Dosage: UNK, AS NEEDED
     Route: 048

REACTIONS (3)
  - ABDOMINAL PAIN [None]
  - ERYTHEMA [None]
  - PYREXIA [None]
